FAERS Safety Report 7416188-4 (Version None)
Quarter: 2011Q2

REPORT INFORMATION
  Report Type: 
  Country: None (occurrence: None)
  Receive Date: 20110414
  Receipt Date: 20110405
  Transmission Date: 20111010
  Serious: Yes (Hospitalization, Other)
  Sender: FDA-Public Use
  Company Number: US-ASTRAZENECA-2011SE12912

PATIENT
  Age: 23655 Day
  Sex: Male
  Weight: 101.6 kg

DRUGS (11)
  1. AVALIDE [Concomitant]
     Dosage: 300-12.5 MG TABS, 1 EVERY MORNING
  2. SPIRIVA [Concomitant]
  3. TESTOSTERONE CYPIONATE [Concomitant]
     Dosage: 200 MG/ML OIL, AS DIRECTED
  4. BENICAR HCT [Concomitant]
     Dosage: 40-12.5 MG TABS, 1 EVERY MORNING
  5. CIALIS [Concomitant]
     Dosage: 10 MG TABS, AS NEEDED
  6. METFORMIN HCL [Concomitant]
     Dosage: 500 MG, 2 ONCE A DAY
  7. SYMBICORT [Suspect]
     Indication: CHRONIC OBSTRUCTIVE PULMONARY DISEASE
     Dosage: 160/4.5 UG, BID
     Route: 055
     Dates: start: 20100928
  8. CRESTOR [Suspect]
     Route: 048
  9. ONGLYZA [Suspect]
     Route: 048
  10. CARVEDILOL [Concomitant]
     Dosage: 6.25 MG TABS, TWO TIMES A DAY
  11. VENLAFAXINE HCL [Concomitant]

REACTIONS (13)
  - HYPERHIDROSIS [None]
  - BRONCHITIS [None]
  - CHRONIC OBSTRUCTIVE PULMONARY DISEASE [None]
  - MYALGIA [None]
  - ARTHRALGIA [None]
  - PYREXIA [None]
  - BONE PAIN [None]
  - HEADACHE [None]
  - DYSPNOEA [None]
  - DECREASED APPETITE [None]
  - INFECTIVE EXACERBATION OF CHRONIC OBSTRUCTIVE AIRWAYS DISEASE [None]
  - DRUG INEFFECTIVE [None]
  - CHEST PAIN [None]
